FAERS Safety Report 9408744 (Version 1)
Quarter: 2013Q3

REPORT INFORMATION
  Report Type: Spontaneous
  Country: US (occurrence: US)
  Receive Date: 20130718
  Receipt Date: 20130718
  Transmission Date: 20140515
  Serious: No
  Sender: FDA-Public Use
  Company Number: US-009507513-1307USA008003

PATIENT
  Sex: Male

DRUGS (3)
  1. PEGINTRON [Suspect]
     Indication: HEPATITIS C
     Dosage: REDIPEN
     Dates: start: 20130503
  2. REBETOL [Suspect]
     Dosage: UNK
     Dates: start: 20130503
  3. VICTRELIS [Suspect]
     Indication: HEPATITIS C
     Dosage: UNK
     Dates: start: 20130601

REACTIONS (3)
  - Dizziness postural [Unknown]
  - Red blood cell count decreased [Unknown]
  - Dyspnoea [Unknown]
